FAERS Safety Report 4757150-X (Version None)
Quarter: 2005Q3

REPORT INFORMATION
  Report Type: 
  Country: None (occurrence: None)
  Receive Date: 20050829
  Receipt Date: 20050815
  Transmission Date: 20060218
  Serious: Yes (Disabling, Other)
  Sender: FDA-Public Use
  Company Number: 2005043620

PATIENT
  Age: 61 Year
  Sex: Female
  Weight: 117.9352 kg

DRUGS (10)
  1. LIPITOR [Suspect]
     Indication: DIABETES MELLITUS NON-INSULIN-DEPENDENT
     Dosage: 10 M G (10 MG, 1 IN 1 D), ORAL
     Route: 048
     Dates: start: 20041102, end: 20050217
  2. LIPITOR [Suspect]
     Indication: HYPERCHOLESTEROLAEMIA
     Dosage: 10 M G (10 MG, 1 IN 1 D), ORAL
     Route: 048
     Dates: start: 20041102, end: 20050217
  3. ADVIL [Suspect]
     Indication: ILL-DEFINED DISORDER
     Dates: start: 20050309
  4. GLUCOPHAGE [Concomitant]
  5. VENTOLIN [Concomitant]
  6. INFLUENZA VACCINE (INFLUENZA VACCINE) [Concomitant]
  7. FIORICET [Concomitant]
  8. ALUMINUM HYDROXIDE AND MAGNESIUM TRISILICATE [Concomitant]
  9. LOPERAMIDE HCL [Concomitant]
  10. ELAVIL [Concomitant]

REACTIONS (20)
  - ABASIA [None]
  - AGEUSIA [None]
  - ANTINUCLEAR ANTIBODY POSITIVE [None]
  - ARTHRALGIA [None]
  - BACK PAIN [None]
  - CHROMATURIA [None]
  - DECREASED ACTIVITY [None]
  - DIARRHOEA [None]
  - DIFFICULTY IN WALKING [None]
  - EATING DISORDER [None]
  - FAECES DISCOLOURED [None]
  - FEAR [None]
  - GASTROINTESTINAL DISORDER [None]
  - HEART RATE INCREASED [None]
  - HYPERTENSION [None]
  - MUSCLE TIGHTNESS [None]
  - MYALGIA [None]
  - MYOCARDIAL INFARCTION [None]
  - SPINAL OSTEOARTHRITIS [None]
  - TREMOR [None]
